FAERS Safety Report 5879052-8 (Version None)
Quarter: 2008Q3

REPORT INFORMATION
  Report Type: 
  Country: None (occurrence: None)
  Receive Date: 20080912
  Receipt Date: 20080908
  Transmission Date: 20090109
  Serious: Yes (Hospitalization)
  Sender: FDA-Public Use
  Company Number: PHHY2008BR20532

PATIENT
  Age: 85 Year
  Sex: Male
  Weight: 55 kg

DRUGS (1)
  1. EXELON [Suspect]
     Dosage: 9MG/5CM2 PATCH
     Route: 062
     Dates: start: 20080101

REACTIONS (3)
  - DIVERTICULITIS [None]
  - PNEUMONIA [None]
  - RENAL FAILURE [None]
